FAERS Safety Report 4915624-2 (Version None)
Quarter: 2006Q1

REPORT INFORMATION
  Report Type: 
  Country: None (occurrence: None)
  Receive Date: 20060217
  Receipt Date: 20060208
  Transmission Date: 20060701
  Serious: Yes (Hospitalization, Other)
  Sender: FDA-Public Use
  Company Number: US-JNJFOC-20050903406

PATIENT
  Sex: Female
  Weight: 49.9 kg

DRUGS (9)
  1. REMICADE [Suspect]
     Route: 042
  2. REMICADE [Suspect]
     Route: 042
  3. REMICADE [Suspect]
     Indication: CROHN'S DISEASE
     Route: 042
  4. METHOTREXATE [Concomitant]
  5. SOLU-MEDROL [Concomitant]
     Indication: PREMEDICATION
  6. BENADRYL [Concomitant]
  7. AUGMENTIN '125' [Concomitant]
  8. AUGMENTIN '125' [Concomitant]
  9. TYLENOL [Concomitant]

REACTIONS (9)
  - ABDOMINAL PAIN [None]
  - ANXIETY [None]
  - BONE PAIN [None]
  - CHOLECYSTECTOMY [None]
  - DYSPNOEA [None]
  - INFUSION RELATED REACTION [None]
  - INTESTINAL PERFORATION [None]
  - MYALGIA [None]
  - PERITONITIS [None]
